FAERS Safety Report 8762053 (Version 2)
Quarter: 2012Q4

REPORT INFORMATION
  Report Type: 
  Country: FR (occurrence: FR)
  Receive Date: 20120830
  Receipt Date: 20121025
  Transmission Date: 20130627
  Serious: Yes (Hospitalization)
  Sender: FDA-Public Use
  Company Number: FR-PFIZER INC-2012211280

PATIENT
  Age: 25 Year
  Sex: Male

DRUGS (7)
  1. INIPOMP [Suspect]
     Dosage: 20 mg daily
     Route: 048
     Dates: start: 201201, end: 20120320
  2. TEMODAL [Suspect]
     Indication: GLIOSARCOMA
     Dosage: 280 mg daily
     Route: 048
     Dates: start: 20120120, end: 20120124
  3. TEMODAL [Suspect]
     Dosage: 140 mg daily
     Route: 048
     Dates: start: 20120209, end: 20120310
  4. DEPAKINE CHRONO [Suspect]
     Dosage: 1 g, daily
     Route: 048
     Dates: start: 201107, end: 20120319
  5. DEPAKINE CHRONO [Suspect]
     Dosage: gradual decrease
     Route: 048
     Dates: start: 20120320, end: 20120331
  6. TEGRETOL [Concomitant]
     Dosage: 600 mg daily
     Route: 048
     Dates: start: 201111, end: 20120216
  7. ZYRTEC [Concomitant]

REACTIONS (1)
  - Pancytopenia [Recovered/Resolved]
